FAERS Safety Report 5501567-2 (Version None)
Quarter: 2007Q4

REPORT INFORMATION
  Report Type: 
  Country: None (occurrence: None)
  Receive Date: 20071022
  Receipt Date: 20070808
  Transmission Date: 20080405
  Serious: No
  Sender: FDA-Public Use
  Company Number: SPV1-2007-03806

PATIENT

DRUGS (2)
  1. VYVANSE [Suspect]
     Dates: start: 20070101
  2. INVEGA (PALIPERIDONE) [Concomitant]

REACTIONS (2)
  - DROOLING [None]
  - SWOLLEN TONGUE [None]
